FAERS Safety Report 10029939 (Version 2)
Quarter: 2014Q4

REPORT INFORMATION
  Report Type: Spontaneous
  Country: GB (occurrence: GB)
  Receive Date: 20140323
  Receipt Date: 20141231
  Transmission Date: 20150528
  Serious: Yes (Disabling, Other)
  Sender: FDA-Public Use
  Company Number: GB-009507513-1403GBR009864

PATIENT
  Age: 41 Year
  Sex: Male
  Weight: 78.92 kg

DRUGS (1)
  1. PROPECIA [Suspect]
     Active Substance: FINASTERIDE
     Indication: ALOPECIA
     Dosage: 1 MG, QD
     Route: 048
     Dates: start: 20100808, end: 20131023

REACTIONS (7)
  - Balance disorder [Recovering/Resolving]
  - Dizziness [Recovering/Resolving]
  - Gait disturbance [Not Recovered/Not Resolved]
  - Mydriasis [Recovering/Resolving]
  - Vertigo [Recovering/Resolving]
  - Holmes-Adie pupil [Recovering/Resolving]
  - Labyrinthitis [Recovering/Resolving]

NARRATIVE: CASE EVENT DATE: 20131022
